FAERS Safety Report 5680578-0 (Version None)
Quarter: 2008Q1

REPORT INFORMATION
  Report Type: 
  Country: None (occurrence: None)
  Receive Date: 20080326
  Receipt Date: 20080320
  Transmission Date: 20080703
  Serious: Yes (Hospitalization, Disabling, Other)
  Sender: FDA-Public Use
  Company Number: DE-ABBOTT-08P-062-0443510-00

PATIENT
  Sex: Male
  Weight: 33 kg

DRUGS (7)
  1. ERGENYL CHRONO TABLETS [Suspect]
     Indication: EPILEPSY
     Route: 048
  2. ERGENYL CHRONO TABLETS [Suspect]
     Dosage: NEW BATCH
     Route: 048
  3. MESUXIMIDE [Concomitant]
     Indication: EPILEPSY
     Route: 048
  4. TOPIRAMATE [Concomitant]
     Indication: EPILEPSY
     Route: 048
  5. L-CARNITINE [Concomitant]
     Indication: EPILEPSY
  6. RISPERIDONE [Concomitant]
     Indication: AGGRESSION
  7. LEVETIRACETAM [Concomitant]
     Indication: EPILEPSY

REACTIONS (3)
  - EXPIRED DRUG ADMINISTERED [None]
  - EXTRASKELETAL OSSIFICATION [None]
  - GAIT DISTURBANCE [None]
